FAERS Safety Report 26169150 (Version 1)
Quarter: 2025Q4

REPORT INFORMATION
  Report Type: Spontaneous
  Country: US (occurrence: US)
  Receive Date: 20251217
  Receipt Date: 20251217
  Transmission Date: 20260117
  Serious: No
  Sender: TEVA
  Company Number: US-TEVA-VS-3403241

PATIENT
  Age: 54 Year

DRUGS (1)
  1. AJOVY [Suspect]
     Active Substance: FREMANEZUMAB-VFRM
     Indication: Product used for unknown indication
     Route: 065
     Dates: start: 20251205, end: 20251205

REACTIONS (2)
  - Rash [Unknown]
  - Injection site rash [Unknown]

NARRATIVE: CASE EVENT DATE: 20251201
